FAERS Safety Report 7630051-5 (Version None)
Quarter: 2011Q3

REPORT INFORMATION
  Report Type: 
  Country: None (occurrence: None)
  Receive Date: 20110715
  Receipt Date: 20110705
  Transmission Date: 20111222
  Serious: Yes (Hospitalization)
  Sender: FDA-Public Use
  Company Number: 2011-1491

PATIENT
  Age: 70 Year
  Sex: Male

DRUGS (1)
  1. APO-GO AMPOULES (APO-GO) (APOMORPHINE HYDROCHLORIDE) (APOMORPHIINE HYD [Suspect]
     Indication: PRODUCT USED FOR UNKNOWN INDICATION
     Dosage: 3 MG/HOUR FOR 20 HOURS.DAY(CONTINUOUS INFUSION (20 H/DAY)), SUBCUTANEOUS
     Route: 058
     Dates: start: 20100317

REACTIONS (1)
  - MUSCLE SPASMS [None]
